FAERS Safety Report 5236810-0 (Version None)
Quarter: 2007Q1

REPORT INFORMATION
  Report Type: 
  Country: None (occurrence: None)
  Receive Date: 20070213
  Receipt Date: 20070131
  Transmission Date: 20070707
  Serious: Yes (Other)
  Sender: FDA-Public Use
  Company Number: PHBS2007FI02090

PATIENT
  Age: 66 Year
  Sex: Female

DRUGS (1)
  1. LEPONEX [Suspect]
     Route: 048

REACTIONS (5)
  - C-REACTIVE PROTEIN INCREASED [None]
  - CONDITION AGGRAVATED [None]
  - DIARRHOEA [None]
  - EMPHYSEMA [None]
  - PYREXIA [None]
